FAERS Safety Report 6771200-0 (Version None)
Quarter: 2010Q2

REPORT INFORMATION
  Report Type: 
  Country: None (occurrence: None)
  Receive Date: 20100616
  Receipt Date: 20100608
  Transmission Date: 20101027
  Serious: Yes (Other)
  Sender: FDA-Public Use
  Company Number: US-BAXTER-2010BH015231

PATIENT
  Sex: Female

DRUGS (2)
  1. GAMMAGARD LIQUID [Suspect]
     Indication: IMMUNODEFICIENCY COMMON VARIABLE
     Route: 042
  2. GAMMAGARD LIQUID [Suspect]
     Indication: PRIMARY IMMUNODEFICIENCY SYNDROME
     Route: 042

REACTIONS (5)
  - CHEST DISCOMFORT [None]
  - HYPERSENSITIVITY [None]
  - OROPHARYNGEAL BLISTERING [None]
  - PRURITUS [None]
  - RASH [None]
